FAERS Safety Report 25186574 (Version 1)
Quarter: 2025Q2

REPORT INFORMATION
  Report Type: Spontaneous
  Country: CN (occurrence: CN)
  Receive Date: 20250411
  Receipt Date: 20250411
  Transmission Date: 20250716
  Serious: Yes (Hospitalization)
  Sender: ROCHE
  Company Number: CN-ROCHE-10000248401

PATIENT
  Age: 59 Year
  Sex: Female

DRUGS (1)
  1. TRASTUZUMAB [Suspect]
     Active Substance: TRASTUZUMAB
     Indication: Breast cancer
     Route: 042
     Dates: start: 20250227, end: 20250227

REACTIONS (2)
  - Sinus tachycardia [Unknown]
  - Electrocardiogram ST-T change [Unknown]

NARRATIVE: CASE EVENT DATE: 20250319
